FAERS Safety Report 10180350 (Version 1)
Quarter: 2014Q2

REPORT INFORMATION
  Report Type: Spontaneous
  Country: US (occurrence: US)
  Receive Date: 20140519
  Receipt Date: 20140519
  Transmission Date: 20141212
  Serious: No
  Sender: FDA-Public Use
  Company Number: US-AMGEN INC.-USASP2013071729

PATIENT
  Age: 62 Year
  Sex: Female

DRUGS (13)
  1. PROLIA [Suspect]
     Indication: OSTEOPOROSIS POSTMENOPAUSAL
     Dosage: UNK
     Route: 065
     Dates: start: 201109
  2. METFORMIN [Concomitant]
     Dosage: UNK UNK, BID
  3. ADVAIR [Concomitant]
     Dosage: UNK
  4. ALLOPURINOL                        /00003302/ [Concomitant]
     Indication: NEPHROLITHIASIS
     Dosage: UNK
  5. MICARDIS [Concomitant]
     Dosage: UNK
  6. ATORVASTATIN [Concomitant]
     Dosage: UNK
  7. FLUTICASONE                        /00972202/ [Concomitant]
     Dosage: UNK
  8. CENTRUM SILVER                     /02363801/ [Concomitant]
     Dosage: UNK
  9. BIOTIN [Concomitant]
     Dosage: UNK
  10. ASPIRIN [Concomitant]
     Dosage: 325 MG, BID
  11. CALCIUM + VITAMIN D                /01483701/ [Concomitant]
     Dosage: UNK
  12. ZINC [Concomitant]
     Dosage: UNK UNK, QHS
     Route: 065
  13. MAGNESIUM                          /00082501/ [Concomitant]
     Dosage: UNK UNK, QHS

REACTIONS (3)
  - Weight decreased [Unknown]
  - Blood glucose increased [Recovered/Resolved]
  - Glycosylated haemoglobin decreased [Unknown]
